FAERS Safety Report 8032372-3 (Version None)
Quarter: 2011Q4

REPORT INFORMATION
  Report Type: 
  Country: None (occurrence: None)
  Receive Date: 20111202
  Receipt Date: 20110607
  Transmission Date: 20120403
  Serious: Yes (Life-Threatening, Hospitalization, Other)
  Sender: FDA-Public Use
  Company Number: 2011SP026360

PATIENT
  Age: 25 Year
  Sex: Female

DRUGS (7)
  1. NEURONTIN [Concomitant]
  2. NUVARING [Suspect]
     Indication: OVARIAN DISORDER
     Dates: start: 20100921, end: 20110504
  3. SOMA [Concomitant]
  4. PROTONIX [Concomitant]
  5. NICOTINE [Concomitant]
  6. COLACE [Concomitant]
  7. ACETAMINOPHEN [Concomitant]

REACTIONS (2)
  - DEEP VEIN THROMBOSIS [None]
  - PULMONARY EMBOLISM [None]
